FAERS Safety Report 6206940-5 (Version None)
Quarter: 2009Q2

REPORT INFORMATION
  Report Type: 
  Country: None (occurrence: None)
  Receive Date: 20090528
  Receipt Date: 20090525
  Transmission Date: 20091009
  Serious: Yes (Other)
  Sender: FDA-Public Use
  Company Number: B0550166A

PATIENT
  Sex: Male

DRUGS (15)
  1. KIVEXA [Suspect]
     Indication: HIV INFECTION
     Route: 048
     Dates: start: 20060112, end: 20080307
  2. KALETRA [Suspect]
     Indication: HIV INFECTION
     Route: 048
     Dates: start: 20060112, end: 20080307
  3. BACTRIM DS [Concomitant]
     Route: 048
  4. RETROVIR [Concomitant]
     Indication: HIV INFECTION
     Route: 065
     Dates: start: 19950906, end: 19970404
  5. HIVID [Concomitant]
     Indication: HIV INFECTION
     Route: 065
     Dates: start: 19960803, end: 19970404
  6. CRIXIVAN [Concomitant]
     Indication: HIV INFECTION
     Route: 065
     Dates: start: 19970405, end: 20030725
  7. EPIVIR [Concomitant]
     Indication: HIV INFECTION
     Route: 065
     Dates: start: 19970405, end: 20030725
  8. ZERIT [Concomitant]
     Indication: HIV INFECTION
     Route: 065
     Dates: start: 19970405, end: 20030416
  9. VIDEX [Concomitant]
     Indication: HIV INFECTION
     Route: 065
     Dates: start: 20031205, end: 20040330
  10. VIRAMUNE [Concomitant]
     Indication: HIV INFECTION
     Route: 065
     Dates: start: 20031205, end: 20040330
  11. VIREAD [Concomitant]
     Indication: HIV INFECTION
     Route: 065
     Dates: start: 20031205, end: 20060112
  12. NORVIR [Concomitant]
     Indication: HIV INFECTION
     Route: 065
     Dates: start: 20040407, end: 20060112
  13. RETROVIR [Concomitant]
     Route: 065
     Dates: start: 20040407, end: 20060112
  14. REYATAZ [Concomitant]
     Indication: HIV INFECTION
     Route: 065
     Dates: start: 20040407, end: 20060112
  15. VIREAD [Concomitant]
     Route: 065
     Dates: start: 20040407, end: 20060112

REACTIONS (2)
  - CARDIAC FAILURE [None]
  - VIROLOGIC FAILURE [None]
